FAERS Safety Report 9720349 (Version 2)
Quarter: 2013Q4

REPORT INFORMATION
  Report Type: Report from Study
  Country: US (occurrence: US)
  Receive Date: 20131129
  Receipt Date: 20131212
  Transmission Date: 20140711
  Serious: Yes (Death, Hospitalization, Other)
  Sender: FDA-Public Use
  Company Number: US-ALEXION PHARMACEUTICALS INC.-A201303526

PATIENT
  Age: 71 Year
  Sex: Male

DRUGS (1)
  1. SOLIRIS [Suspect]
     Indication: HAEMOLYTIC URAEMIC SYNDROME
     Dosage: UNK UNK, SINGLE
     Route: 042
     Dates: start: 20131106, end: 20131106

REACTIONS (3)
  - Death [Fatal]
  - Leukaemia [Unknown]
  - Chills [Unknown]
